FAERS Safety Report 25318078 (Version 1)
Quarter: 2025Q2

REPORT INFORMATION
  Report Type: Spontaneous
  Country: DE (occurrence: DE)
  Receive Date: 20250515
  Receipt Date: 20250515
  Transmission Date: 20250717
  Serious: Yes (Life-Threatening, Other)
  Sender: MERCK SHARP & DOHME LLC
  Company Number: DE-DCGMA-25204909

PATIENT
  Age: 75 Year
  Sex: Female

DRUGS (5)
  1. KEYTRUDA [Suspect]
     Active Substance: PEMBROLIZUMAB
     Indication: Neoplasm malignant
     Route: 042
     Dates: start: 20250117, end: 20250207
  2. BISOPROLOL [Concomitant]
     Active Substance: BISOPROLOL
     Indication: Hypertension
     Route: 065
  3. DOXAZOSIN MESYLATE [Concomitant]
     Active Substance: DOXAZOSIN MESYLATE
     Indication: Hypertension
     Route: 065
  4. CARBOPLATIN [Concomitant]
     Active Substance: CARBOPLATIN
     Indication: Triple negative breast cancer
     Route: 042
     Dates: start: 20250117, end: 20250214
  5. PACLITAXEL [Concomitant]
     Active Substance: PACLITAXEL
     Indication: Triple negative breast cancer
     Dosage: 80 MG/M2
     Route: 042
     Dates: start: 20250117, end: 20250214

REACTIONS (7)
  - Autoimmune hepatitis [Unknown]
  - Respiratory failure [Unknown]
  - Eyelid ptosis [Unknown]
  - Muscular weakness [Unknown]
  - Diplopia [Unknown]
  - Dysphagia [Unknown]
  - Myasthenic syndrome [Unknown]

NARRATIVE: CASE EVENT DATE: 20250221
